FAERS Safety Report 9199060 (Version 1)
Quarter: 2013Q1

REPORT INFORMATION
  Report Type: Spontaneous
  Country: US (occurrence: US)
  Receive Date: 20130329
  Receipt Date: 20130329
  Transmission Date: 20140127
  Serious: No
  Sender: FDA-Public Use
  Company Number: US-009507513-1303USA007686

PATIENT
  Sex: Female

DRUGS (2)
  1. CLARITIN [Suspect]
     Indication: PRODUCT USED FOR UNKNOWN INDICATION
     Dosage: 10 MG, ONCE
     Route: 048
  2. EXCEDRIN (ACETAMINOPHEN (+) ASPIRIN (+) CAFFEINE) [Suspect]
     Indication: PRODUCT USED FOR UNKNOWN INDICATION
     Dosage: 2 DF, ONCE
     Route: 048

REACTIONS (2)
  - Dyspnoea [Recovered/Resolved]
  - Paranasal sinus hypersecretion [Unknown]
